FAERS Safety Report 19907432 (Version 1)
Quarter: 2021Q4

REPORT INFORMATION
  Report Type: Spontaneous
  Country: CA (occurrence: CA)
  Receive Date: 20211001
  Receipt Date: 20211001
  Transmission Date: 20220303
  Serious: Yes (Hospitalization, Other)
  Sender: FDA-Public Use
  Company Number: CA-TEVA-2021-CA-1959530

PATIENT
  Age: 40 Year
  Sex: Female

DRUGS (2)
  1. DULOXETINE [Suspect]
     Active Substance: DULOXETINE
     Route: 065
  2. PFIZER-BIONTECH COVID-19 VACCINE VIAL CONTAINS 5 DOSES OF 0.3 ML [Concomitant]

REACTIONS (3)
  - Blindness [Recovered/Resolved with Sequelae]
  - Retinal tear [Recovered/Resolved with Sequelae]
  - Vitreous haemorrhage [Recovered/Resolved with Sequelae]
